FAERS Safety Report 5908282-1 (Version None)
Quarter: 2008Q4

REPORT INFORMATION
  Report Type: 
  Country: None (occurrence: None)
  Receive Date: 20081006
  Receipt Date: 20080926
  Transmission Date: 20090506
  Serious: Yes (Life-Threatening, Other)
  Sender: FDA-Public Use
  Company Number: CA-JNJFOC-20080703980

PATIENT
  Sex: Female

DRUGS (4)
  1. REMICADE [Suspect]
     Indication: CROHN'S DISEASE
     Route: 042
  2. HYDROCHLOROTHIAZIDE [Concomitant]
  3. BISOPROLOL [Concomitant]
  4. ASPIRIN [Concomitant]

REACTIONS (1)
  - NON-SMALL CELL LUNG CANCER [None]
